FAERS Safety Report 16857889 (Version 1)
Quarter: 2019Q3

REPORT INFORMATION
  Report Type: Spontaneous
  Country: US (occurrence: US)
  Receive Date: 20190926
  Receipt Date: 20190926
  Transmission Date: 20191005
  Serious: Yes (Other)
  Sender: FDA-Public Use
  Company Number: US-JNJFOC-20190924678

PATIENT
  Age: 64 Year
  Sex: Female

DRUGS (1)
  1. STELARA [Suspect]
     Active Substance: USTEKINUMAB
     Indication: CROHN^S DISEASE
     Route: 042
     Dates: start: 20190821

REACTIONS (5)
  - Hepatitis C [Unknown]
  - Hypersomnia [Unknown]
  - Fatigue [Unknown]
  - Ileostomy [Unknown]
  - Colectomy total [Unknown]

NARRATIVE: CASE EVENT DATE: 2019
